FAERS Safety Report 16647907 (Version 2)
Quarter: 2019Q3

REPORT INFORMATION
  Report Type: Spontaneous
  Country: US (occurrence: US)
  Receive Date: 20190730
  Receipt Date: 20190801
  Transmission Date: 20191004
  Serious: Yes (Other)
  Sender: FDA-Public Use
  Company Number: US-009507513-1907USA011239

PATIENT
  Age: 17 Year
  Sex: Female
  Weight: 72.56 kg

DRUGS (1)
  1. NEXPLANON [Suspect]
     Active Substance: ETONOGESTREL
     Indication: CONTRACEPTION
     Dosage: 1 IMPLANT IN LEFT ARM (3 YEARS)
     Route: 059
     Dates: start: 20160828

REACTIONS (7)
  - Implant site pruritus [Not Recovered/Not Resolved]
  - Dyspnoea [Unknown]
  - Mood swings [Not Recovered/Not Resolved]
  - Implant site pain [Not Recovered/Not Resolved]
  - Inappropriate schedule of product administration [Unknown]
  - Seizure [Not Recovered/Not Resolved]
  - Dizziness [Not Recovered/Not Resolved]

NARRATIVE: CASE EVENT DATE: 20160828
